FAERS Safety Report 14568473 (Version 1)
Quarter: 2018Q1

REPORT INFORMATION
  Report Type: Spontaneous
  Country: IT (occurrence: IT)
  Receive Date: 20180223
  Receipt Date: 20180223
  Transmission Date: 20180509
  Serious: Yes (Other)
  Sender: FDA-Public Use
  Company Number: IT-TEVA-2018-IT-862108

PATIENT
  Age: 31 Year
  Sex: Female

DRUGS (3)
  1. ELOPRAM 20 MG COMPRESSE RIVESTITE CON FILM [Concomitant]
  2. ATORVASTATIN CALCIUM TRIHYDRATE [Suspect]
     Active Substance: ATORVASTATIN CALCIUM
     Indication: DYSLIPIDAEMIA
     Route: 065
  3. EUTIROX 75 MICROGRAMMI COMPRESSE [Concomitant]

REACTIONS (3)
  - Nausea [Recovered/Resolved]
  - Vomiting [Recovered/Resolved]
  - Abdominal pain lower [Recovered/Resolved]

NARRATIVE: CASE EVENT DATE: 20170819
